FAERS Safety Report 16751073 (Version 4)
Quarter: 2019Q3

REPORT INFORMATION
  Report Type: Spontaneous
  Country: CH (occurrence: CH)
  Receive Date: 20190828
  Receipt Date: 20190910
  Transmission Date: 20191005
  Serious: Yes (Hospitalization)
  Sender: FDA-Public Use
  Company Number: CH-MYLANLABS-2019M1080896

PATIENT
  Age: 66 Year
  Sex: Female
  Weight: 46.7 kg

DRUGS (3)
  1. NEXIUM MUPS                        /01479302/ [Concomitant]
     Active Substance: ESOMEPRAZOLE MAGNESIUM
     Indication: ANTIBIOTIC THERAPY
     Dosage: 1 DOSAGE FORM, QD
     Route: 048
     Dates: start: 20190724
  2. BRUFEN [Suspect]
     Active Substance: IBUPROFEN
     Indication: ANTIBIOTIC THERAPY
     Dosage: 400 MILLIGRAM, TID
     Route: 048
     Dates: start: 20190724, end: 20190805
  3. CO-AMOXI [Concomitant]
     Active Substance: AMOXICILLIN\CLAVULANATE POTASSIUM
     Indication: ANTIBIOTIC THERAPY
     Dosage: 1 DOSAGE FORM, BID
     Route: 048
     Dates: start: 20190724

REACTIONS (4)
  - Haematemesis [Recovered/Resolved]
  - Anaemia [Recovering/Resolving]
  - Melaena [Recovered/Resolved]
  - Gastric ulcer haemorrhage [Recovering/Resolving]

NARRATIVE: CASE EVENT DATE: 201907
